FAERS Safety Report 7835561-3 (Version None)
Quarter: 2011Q4

REPORT INFORMATION
  Report Type: 
  Country: None (occurrence: None)
  Receive Date: 20111020
  Receipt Date: 20111006
  Transmission Date: 20120403
  Serious: Yes (Hospitalization)
  Sender: FDA-Public Use
  Company Number: 20110700

PATIENT
  Age: 48 Year
  Sex: Female

DRUGS (18)
  1. FLAGYL [Concomitant]
  2. VENOFER [Suspect]
     Indication: IRON DEFICIENCY ANAEMIA
     Dosage: IF 1 OR 2 DOSES
     Dates: start: 20110818, end: 20110818
  3. EMEND [Concomitant]
  4. PURINETHOL [Concomitant]
  5. VICTOZA [Concomitant]
  6. ZELITREX (VALACYCLOVIR) [Concomitant]
  7. METHOTREXATE [Concomitant]
  8. FOLINORAL (CALCIUM FOLINATE) [Concomitant]
  9. LYRICA [Concomitant]
  10. ZOFRAN [Concomitant]
  11. METFORMIN HCL [Concomitant]
  12. VINCRISTINE [Concomitant]
  13. AMARYL [Concomitant]
  14. ARANESP [Concomitant]
  15. PANTOPRAZOLE [Concomitant]
  16. KIDROLAST (ASPARAGINASE) [Concomitant]
  17. LUTENYL (NOMEGESTROL) [Concomitant]
  18. TRANXENE (CLORAZEPAM) [Concomitant]

REACTIONS (7)
  - VENTRICULAR EXTRASYSTOLES [None]
  - MALAISE [None]
  - DIZZINESS [None]
  - APLASIA [None]
  - SPEECH DISORDER [None]
  - BLOOD PRESSURE DIASTOLIC DECREASED [None]
  - TACHYCARDIA [None]
